FAERS Safety Report 6141378-0 (Version None)
Quarter: 2009Q2

REPORT INFORMATION
  Report Type: 
  Country: None (occurrence: None)
  Receive Date: 20090401
  Receipt Date: 20090401
  Transmission Date: 20091009
  Serious: Yes (Life-Threatening)
  Sender: FDA-Public Use
  Company Number: None

PATIENT
  Age: 50 Year
  Sex: Male
  Weight: 108.8633 kg

DRUGS (1)
  1. AMBIEN CR [Suspect]
     Indication: INSOMNIA
     Dosage: 1 TABLET ONCE NIGHTLY PRN PO
     Route: 048

REACTIONS (4)
  - AMNESIA [None]
  - LEGAL PROBLEM [None]
  - ROAD TRAFFIC ACCIDENT [None]
  - SOMNAMBULISM [None]
